FAERS Safety Report 9846696 (Version 1)
Quarter: 2014Q1

REPORT INFORMATION
  Report Type: Report from Study
  Country: US (occurrence: US)
  Receive Date: 20140127
  Receipt Date: 20140127
  Transmission Date: 20141002
  Serious: Yes (Hospitalization, Other)
  Sender: FDA-Public Use
  Company Number: US-ABBVIE-14P-163-1191594-00

PATIENT
  Age: 43 Year
  Sex: Female
  Weight: 87.62 kg

DRUGS (5)
  1. HUMIRA [Suspect]
     Indication: ANKYLOSING SPONDYLITIS
     Dates: start: 2012, end: 201209
  2. HUMIRA [Suspect]
     Indication: ANKYLOSING SPONDYLITIS
  3. LISINOPRIL [Concomitant]
     Indication: HYPERTENSION
  4. ARAVA [Concomitant]
     Indication: ANKYLOSING SPONDYLITIS
  5. CITALOPRAM [Concomitant]
     Indication: DEPRESSION

REACTIONS (12)
  - Joint lock [Recovered/Resolved]
  - Coronary artery aneurysm [Not Recovered/Not Resolved]
  - Fall [Recovered/Resolved]
  - Cervical vertebral fracture [Recovered/Resolved with Sequelae]
  - Head injury [Recovered/Resolved]
  - Laceration [Recovered/Resolved]
  - Joint crepitation [Not Recovered/Not Resolved]
  - Injection site bruising [Not Recovered/Not Resolved]
  - Dyspnoea [Unknown]
  - Asthma [Not Recovered/Not Resolved]
  - Neck pain [Not Recovered/Not Resolved]
  - Joint range of motion decreased [Not Recovered/Not Resolved]
